FAERS Safety Report 5447787-7 (Version None)
Quarter: 2007Q3

REPORT INFORMATION
  Report Type: 
  Country: None (occurrence: None)
  Receive Date: 20070910
  Receipt Date: 20070906
  Transmission Date: 20080115
  Serious: Yes (Death)
  Sender: FDA-Public Use
  Company Number: UA-ASTRAZENECA-2007SE04770

PATIENT
  Age: 49 Year
  Sex: Male

DRUGS (2)
  1. DIPRIVAN [Suspect]
     Indication: ANAESTHESIA
     Route: 042
     Dates: start: 20070808, end: 20070808
  2. FENTANIL [Concomitant]
     Route: 042
     Dates: start: 20070808, end: 20070808

REACTIONS (3)
  - BRADYCARDIA [None]
  - BRAIN DEATH [None]
  - HYPOTENSION [None]
